FAERS Safety Report 6731549-4 (Version None)
Quarter: 2010Q2

REPORT INFORMATION
  Report Type: 
  Country: None (occurrence: None)
  Receive Date: 20100519
  Receipt Date: 20100511
  Transmission Date: 20101027
  Serious: No
  Sender: FDA-Public Use
  Company Number: US-BIOGENIDEC-2010BI016169

PATIENT
  Age: 56 Year
  Sex: Female

DRUGS (1)
  1. TYSABRI [Suspect]
     Indication: MULTIPLE SCLEROSIS
     Route: 042
     Dates: start: 20070129

REACTIONS (5)
  - DECREASED IMMUNE RESPONSIVENESS [None]
  - FATIGUE [None]
  - INFECTIOUS MONONUCLEOSIS [None]
  - MUSCLE SPASMS [None]
  - SINUSITIS [None]
